FAERS Safety Report 5373943-2 (Version None)
Quarter: 2007Q2

REPORT INFORMATION
  Report Type: 
  Country: None (occurrence: None)
  Receive Date: 20070628
  Receipt Date: 20070621
  Transmission Date: 20071010
  Serious: Yes (Other)
  Sender: FDA-Public Use
  Company Number: CA-PFIZER INC-2007051708

PATIENT
  Age: 56 Year
  Sex: Male

DRUGS (2)
  1. VIAGRA [Suspect]
     Route: 048
  2. RAMIPRIL [Concomitant]

REACTIONS (4)
  - BLINDNESS [None]
  - HEADACHE [None]
  - NASAL CONGESTION [None]
  - SINUSITIS [None]
